FAERS Safety Report 10239466 (Version 1)
Quarter: 2014Q1

REPORT INFORMATION
  Report Type: Spontaneous
  Country: US (occurrence: None)
  Receive Date: 20140306
  Receipt Date: 20140306
  Transmission Date: 20141002
  Serious: Yes (Hospitalization)
  Sender: FDA-Public Use
  Company Number: 163-21880-13092641

PATIENT
  Age: 73 Year
  Sex: Female

DRUGS (9)
  1. REVLIMID [Suspect]
     Indication: MYELODYSPLASTIC SYNDROME
     Dosage: TEMPORARILY INTERRUPTED
     Route: 048
     Dates: start: 20130730
  2. ACETAMINOPHEN EXTRA STRENGTH (PARACETAMOL) (UNKNOWN) [Concomitant]
  3. AFFIXOR (VENLAFAXINE HYDROCHLORIDE) (UNKNOWN) [Concomitant]
  4. AMITIZA (LUBIPROSTONE) (UKNOWN) [Concomitant]
  5. C-500 (ASCORBIC ACID) (UNKNOWN) [Concomitant]
  6. COLACE (DOCUSATE SODIUM) (UNKNOWN) [Concomitant]
  7. FERROUS SULFATE (FERROUS SULFATE) (UNKNOWN) [Concomitant]
  8. IMODIUM A-D (LOPERAMIDE HYDROCHLORIDE) (UNKNOWN) [Concomitant]
  9. LEVOTHYROXINE SODIUM (LEVOTHYROXINE SODIUM) (UNKNOWN) [Concomitant]

REACTIONS (2)
  - Cystitis [None]
  - Kidney infection [None]
